FAERS Safety Report 8120865-X (Version None)
Quarter: 2012Q1

REPORT INFORMATION
  Report Type: 
  Country: None (occurrence: None)
  Receive Date: 20120206
  Receipt Date: 20120206
  Transmission Date: 20120608
  Serious: No
  Sender: FDA-Public Use
  Company Number: None

PATIENT
  Sex: Female
  Weight: 59.8748 kg

DRUGS (1)
  1. SPIRIVA [Suspect]
     Indication: CHRONIC OBSTRUCTIVE PULMONARY DISEASE
     Dosage: ONCE DAILY -} INHALER
     Route: 055
     Dates: start: 20091201, end: 20111201

REACTIONS (6)
  - PHARYNGEAL OEDEMA [None]
  - DRY MOUTH [None]
  - SINUSITIS [None]
  - VISION BLURRED [None]
  - RHINORRHOEA [None]
  - DYSPHONIA [None]
